FAERS Safety Report 14607109 (Version 1)
Quarter: 2018Q1

REPORT INFORMATION
  Report Type: Spontaneous
  Country: FR (occurrence: FR)
  Receive Date: 20180307
  Receipt Date: 20180307
  Transmission Date: 20180509
  Serious: Yes (Other)
  Sender: FDA-Public Use
  Company Number: FR-MERCK KGAA-2043175

PATIENT
  Sex: Female

DRUGS (1)
  1. NOVOTHYROX [Suspect]
     Active Substance: LEVOTHYROXINE SODIUM
     Indication: PRODUCT USED FOR UNKNOWN INDICATION

REACTIONS (11)
  - Diarrhoea [None]
  - Muscle spasms [None]
  - Hyperhidrosis [None]
  - Nausea [None]
  - Weight increased [None]
  - Arrhythmia [None]
  - Aggression [None]
  - Insomnia [None]
  - Angina pectoris [None]
  - Abdominal pain upper [None]
  - Visual impairment [None]
